FAERS Safety Report 8878524 (Version 1)
Quarter: 2012Q4

REPORT INFORMATION
  Report Type: 
  Country: US (occurrence: US)
  Receive Date: 20121025
  Receipt Date: 20121025
  Transmission Date: 20130627
  Serious: No
  Sender: FDA-Public Use
  Company Number: US-AMGEN-USASP2012023092

PATIENT
  Age: 45 Year
  Sex: Female

DRUGS (6)
  1. ENBREL [Suspect]
     Indication: PSORIATIC ARTHROPATHY
     Dosage: 50 mg, qwk
     Dates: start: 201111
  2. VITAMIN D /00107901/ [Concomitant]
     Dosage: UNK IU, UNK
  3. CYMBALTA [Concomitant]
     Dosage: UNK mg, UNK
  4. LYRICA [Concomitant]
     Dosage: UNK mg, UNK
  5. HYDROCHLOROTHIAZIDE [Concomitant]
     Dosage: UNK mg, UNK
  6. LISINOPRIL [Concomitant]
     Dosage: UNK mg, UNK

REACTIONS (3)
  - Increased tendency to bruise [Unknown]
  - Abdominal pain [Recovering/Resolving]
  - Sinusitis [Unknown]
